FAERS Safety Report 16646520 (Version 4)
Quarter: 2021Q3

REPORT INFORMATION
  Report Type: Spontaneous
  Country: CA (occurrence: CA)
  Receive Date: 20190730
  Receipt Date: 20210811
  Transmission Date: 20211014
  Serious: Yes (Life-Threatening)
  Sender: FDA-Public Use
  Company Number: PHHY2019CA174300

PATIENT
  Age: 34 Year
  Sex: Female
  Weight: 70 kg

DRUGS (6)
  1. LORAZEPAM. [Suspect]
     Active Substance: LORAZEPAM
     Indication: ANXIETY
     Dosage: 1 MG
     Route: 048
  2. ROCURONIUM BROMIDE. [Suspect]
     Active Substance: ROCURONIUM BROMIDE
     Indication: NEUROMUSCULAR BLOCKADE
     Dosage: 19 MG
     Route: 030
  3. ROCURONIUM BROMIDE. [Suspect]
     Active Substance: ROCURONIUM BROMIDE
     Dosage: 5 MG
     Route: 030
  4. SUGAMMADEX [Suspect]
     Active Substance: SUGAMMADEX
     Indication: NEUROMUSCULAR BLOCKADE
     Dosage: 100 MG
     Route: 042
  5. OXYGEN. [Suspect]
     Active Substance: OXYGEN
     Indication: PRODUCT USED FOR UNKNOWN INDICATION
     Dosage: UNK
     Route: 065
  6. LACTATED RINGERS SOLUTION [Suspect]
     Active Substance: CALCIUM CHLORIDE\POTASSIUM CHLORIDE\SODIUM CHLORIDE\SODIUM LACTATE
     Indication: PRODUCT USED FOR UNKNOWN INDICATION
     Dosage: UNK
     Route: 042

REACTIONS (10)
  - Tachypnoea [Recovering/Resolving]
  - Paralysis [Recovering/Resolving]
  - Neuromuscular blockade [Recovered/Resolved]
  - Dysphonia [Recovered/Resolved]
  - Paraesthesia oral [Unknown]
  - Respiratory distress [Recovered/Resolved]
  - Hypoaesthesia oral [Unknown]
  - Hypotonia [Recovered/Resolved]
  - Dyspnoea [Recovering/Resolving]
  - Maternal exposure during pregnancy [Unknown]
